FAERS Safety Report 17322696 (Version 1)
Quarter: 2020Q1

REPORT INFORMATION
  Report Type: Report from Study
  Country: None (occurrence: JP)
  Receive Date: 20200127
  Receipt Date: 20200127
  Transmission Date: 20200409
  Serious: Yes (Hospitalization)
  Sender: FDA-Public Use
  Company Number: JP-ABBVIE-19S-087-2668156-00

PATIENT
  Age: 74 Year
  Sex: Male
  Weight: 60 kg

DRUGS (9)
  1. BISOPROLOL [Concomitant]
     Active Substance: BISOPROLOL
     Indication: PRODUCT USED FOR UNKNOWN INDICATION
     Route: 062
  2. DUODOPA [Suspect]
     Active Substance: CARBIDOPA\LEVODOPA
     Indication: PARKINSON^S DISEASE
     Dosage: MD: 9 ML CD: 3.6 ML/HR ? 16 HRS ED: 1 ML/UNIT ? 2
     Route: 050
     Dates: start: 20190121, end: 20191223
  3. DUODOPA [Suspect]
     Active Substance: CARBIDOPA\LEVODOPA
     Dosage: MD : 13.5 ML?CD : 4 ML/HR ? 16 HRS?ED : 2 ML/UNIT ? 1 TIMES
     Route: 050
     Dates: start: 20191224
  4. CLONAZEPAM. [Concomitant]
     Active Substance: CLONAZEPAM
     Indication: PRODUCT USED FOR UNKNOWN INDICATION
     Dosage: 0.5
     Route: 048
  5. MAGNESIUM OXIDE. [Concomitant]
     Active Substance: MAGNESIUM OXIDE
     Indication: PRODUCT USED FOR UNKNOWN INDICATION
     Route: 048
  6. CELECOXIB. [Concomitant]
     Active Substance: CELECOXIB
     Indication: PRODUCT USED FOR UNKNOWN INDICATION
     Dosage: 100
     Route: 048
  7. MOSAPRIDE CITRATE HYDRATE [Concomitant]
     Active Substance: MOSAPRIDE CITRATE DIHYDRATE
     Indication: PRODUCT USED FOR UNKNOWN INDICATION
     Route: 048
  8. REBAMIPIDE [Concomitant]
     Active Substance: REBAMIPIDE
     Indication: PRODUCT USED FOR UNKNOWN INDICATION
     Dosage: 300
     Route: 048
  9. NITRAZEPAM [Concomitant]
     Active Substance: NITRAZEPAM
     Indication: PRODUCT USED FOR UNKNOWN INDICATION
     Dosage: 5
     Route: 048

REACTIONS (6)
  - Therapeutic product effect decreased [Unknown]
  - Stoma site discharge [Unknown]
  - Stoma site erythema [Recovering/Resolving]
  - Mobility decreased [Unknown]
  - Stoma site pruritus [Recovering/Resolving]
  - Volvulus [Recovering/Resolving]

NARRATIVE: CASE EVENT DATE: 2019
